FAERS Safety Report 6585423-7 (Version None)
Quarter: 2010Q1

REPORT INFORMATION
  Report Type: 
  Country: None (occurrence: None)
  Receive Date: 20100217
  Receipt Date: 20100209
  Transmission Date: 20100710
  Serious: Yes (Hospitalization)
  Sender: FDA-Public Use
  Company Number: B0583372A

PATIENT
  Sex: Female

DRUGS (12)
  1. KIVEXA [Suspect]
     Route: 048
  2. BACTRIM [Suspect]
     Indication: DRUG USE FOR UNKNOWN INDICATION
     Route: 065
     Dates: start: 20090618, end: 20090626
  3. RIMIFON [Suspect]
     Indication: TUBERCULOSIS
     Route: 065
     Dates: start: 20090610
  4. KALETRA [Suspect]
     Route: 065
  5. LOXEN [Concomitant]
     Indication: DRUG USE FOR UNKNOWN INDICATION
     Route: 065
  6. BUMEX [Concomitant]
     Indication: DRUG USE FOR UNKNOWN INDICATION
     Route: 065
  7. OMEPRAZOLE [Concomitant]
     Indication: DRUG USE FOR UNKNOWN INDICATION
     Route: 065
  8. ISENTRESS [Concomitant]
     Indication: DRUG USE FOR UNKNOWN INDICATION
     Route: 065
  9. HYPNOVEL [Concomitant]
     Indication: DRUG USE FOR UNKNOWN INDICATION
     Route: 065
  10. SUFENTA [Concomitant]
     Indication: DRUG USE FOR UNKNOWN INDICATION
     Route: 065
  11. ANSATIPINE [Concomitant]
     Indication: DRUG USE FOR UNKNOWN INDICATION
     Route: 065
  12. IZILOX [Concomitant]
     Indication: DRUG USE FOR UNKNOWN INDICATION
     Route: 065

REACTIONS (7)
  - BLOOD BILIRUBIN INCREASED [None]
  - HAEMOLYTIC URAEMIC SYNDROME [None]
  - INFECTION [None]
  - LIPASE INCREASED [None]
  - PAIN [None]
  - PANCREATITIS [None]
  - PANCREATITIS ACUTE [None]
